FAERS Safety Report 12531387 (Version 1)
Quarter: 2016Q3

REPORT INFORMATION
  Report Type: Spontaneous
  Country: BE (occurrence: BE)
  Receive Date: 20160706
  Receipt Date: 20160706
  Transmission Date: 20161109
  Serious: Yes (Other)
  Sender: FDA-Public Use
  Company Number: BE-PFIZER INC-2016248202

PATIENT
  Age: 19 Year
  Sex: Female

DRUGS (1)
  1. EPIPEN JR [Suspect]
     Active Substance: EPINEPHRINE
     Indication: FOOD ALLERGY
     Dosage: UNK
     Dates: start: 20160423

REACTIONS (2)
  - Injection site bruising [Unknown]
  - Product quality issue [Unknown]

NARRATIVE: CASE EVENT DATE: 20160423
